FAERS Safety Report 11283726 (Version 1)
Quarter: 2015Q3

REPORT INFORMATION
  Report Type: Spontaneous
  Country: KR (occurrence: KR)
  Receive Date: 20150720
  Receipt Date: 20150720
  Transmission Date: 20151125
  Serious: Yes (Other)
  Sender: FDA-Public Use
  Company Number: KR-JNJFOC-20150711437

PATIENT

DRUGS (2)
  1. SPORANOX [Suspect]
     Active Substance: ITRACONAZOLE\SODIUM CHLORIDE
     Indication: ANTIFUNGAL PROPHYLAXIS
     Route: 042
  2. SPORANOX [Suspect]
     Active Substance: ITRACONAZOLE\SODIUM CHLORIDE
     Indication: ANTIFUNGAL PROPHYLAXIS
     Route: 048

REACTIONS (1)
  - Aspergillus infection [Unknown]
